FAERS Safety Report 23524514 (Version 3)
Quarter: 2024Q1

REPORT INFORMATION
  Report Type: Other
  Country: US (occurrence: None)
  Receive Date: 20240214
  Receipt Date: 20240227
  Transmission Date: 20240409
  Serious: Yes (Death)
  Sender: FDA-Public Use
  Company Number: US-ROCHE-3304053

PATIENT
  Age: 76 Year
  Sex: Female
  Weight: 72 kg

DRUGS (4)
  1. AVASTIN [Suspect]
     Active Substance: BEVACIZUMAB
     Indication: Endometrial cancer
     Dosage: 700 MG (10 MG/KG) ON DAY 1 AND DAY 15 EVERY 4 WEEKS, DOSE 100 MG AND DOSE 400 MG, DATE OF SERVICE :
     Route: 042
  2. CISPLATIN [Concomitant]
     Active Substance: CISPLATIN
  3. GEMCITABINE [Concomitant]
     Active Substance: GEMCITABINE
  4. TOPOTECAN [Concomitant]
     Active Substance: TOPOTECAN HYDROCHLORIDE

REACTIONS (2)
  - Off label use [Unknown]
  - Neoplasm malignant [Fatal]
